FAERS Safety Report 5406311-5 (Version None)
Quarter: 2007Q3

REPORT INFORMATION
  Report Type: 
  Country: None (occurrence: None)
  Receive Date: 20070806
  Receipt Date: 20070613
  Transmission Date: 20080115
  Serious: Yes (Disabling, Other)
  Sender: FDA-Public Use
  Company Number: US-PURDUE-USA_2007_0028034

PATIENT
  Sex: Male

DRUGS (1)
  1. OXYCONTIN [Suspect]
     Indication: BACK PAIN
     Dosage: UNK, SEE TEXT
     Dates: start: 19990101, end: 20020101

REACTIONS (8)
  - AGGRESSION [None]
  - DRUG ABUSER [None]
  - DRUG DEPENDENCE [None]
  - EUPHORIC MOOD [None]
  - HEPATITIS C [None]
  - HYPERTENSION [None]
  - INSOMNIA [None]
  - URINARY TRACT DISORDER [None]
